FAERS Safety Report 14432673 (Version 1)
Quarter: 2018Q1

REPORT INFORMATION
  Report Type: Spontaneous
  Country: US (occurrence: US)
  Receive Date: 20180124
  Receipt Date: 20180124
  Transmission Date: 20180509
  Serious: No
  Sender: FDA-Public Use
  Company Number: US-ASTRAZENECA-2009BM02405

PATIENT
  Age: 59 Year
  Sex: Female

DRUGS (7)
  1. BYETTA [Suspect]
     Active Substance: EXENATIDE
     Indication: TYPE 2 DIABETES MELLITUS
     Route: 058
     Dates: start: 200709
  2. EXENATIDE. [Concomitant]
     Active Substance: EXENATIDE
     Dosage: 10 MG DISPOSABLE DEVICE
  3. BYETTA [Suspect]
     Active Substance: EXENATIDE
     Indication: TYPE 2 DIABETES MELLITUS
     Dosage: 250 MCG  / 2.4 ML PEN, TWO TIMES A DAY
     Route: 058
     Dates: start: 20160204
  4. EXENATIDE. [Concomitant]
     Active Substance: EXENATIDE
     Dosage: 10 MG DISPOSABLE DEVICE
  5. BYDUREON BCISE [Suspect]
     Active Substance: EXENATIDE
     Indication: TYPE 2 DIABETES MELLITUS
     Route: 058
     Dates: start: 20171208
  6. EXENATIDE. [Concomitant]
     Active Substance: EXENATIDE
     Dosage: 05 MG DISPOSABLE DEVICE
  7. BYETTA [Suspect]
     Active Substance: EXENATIDE
     Indication: TYPE 2 DIABETES MELLITUS
     Route: 058
     Dates: start: 200708, end: 200709

REACTIONS (3)
  - Injection site mass [Unknown]
  - Weight decreased [Unknown]
  - Injection site haemorrhage [Unknown]

NARRATIVE: CASE EVENT DATE: 200708
